FAERS Safety Report 7408275-1 (Version None)
Quarter: 2011Q2

REPORT INFORMATION
  Report Type: 
  Country: None (occurrence: None)
  Receive Date: 20110412
  Receipt Date: 20110321
  Transmission Date: 20111010
  Serious: Yes (Hospitalization, Other)
  Sender: FDA-Public Use
  Company Number: US-BAYER-2010-002102

PATIENT
  Age: 36 Year
  Sex: Female
  Weight: 126.98 kg

DRUGS (5)
  1. LOVASTATIN [Concomitant]
  2. YAZ [Suspect]
     Indication: PRODUCT USED FOR UNKNOWN INDICATION
     Dosage: UNK
     Route: 048
     Dates: start: 20090301, end: 20090701
  3. YASMIN [Suspect]
     Indication: PRODUCT USED FOR UNKNOWN INDICATION
     Route: 048
  4. METOPROLOL TARTRATE [Concomitant]
  5. CLARITIN-D [Concomitant]
     Dosage: 1 DAILY

REACTIONS (1)
  - MYOCARDIAL INFARCTION [None]
